FAERS Safety Report 17578696 (Version 3)
Quarter: 2020Q2

REPORT INFORMATION
  Report Type: Report from Study
  Country: US (occurrence: US)
  Receive Date: 20200325
  Receipt Date: 20200526
  Transmission Date: 20200713
  Serious: Yes (Other)
  Sender: FDA-Public Use
  Company Number: US-IPSEN BIOPHARMACEUTICALS, INC.-2020-05910

PATIENT
  Sex: Female

DRUGS (1)
  1. SOMATULINE DEPOT [Suspect]
     Active Substance: LANREOTIDE ACETATE
     Indication: ACROMEGALY
     Dosage: 120 MG, INJECTION SITE: UPPER OUTER BUTTOCKS ROTATE SIDE.
     Route: 058
     Dates: start: 20181101

REACTIONS (1)
  - Exposure to SARS-CoV-2 [Unknown]
